FAERS Safety Report 8804280 (Version 2)
Quarter: 2013Q2

REPORT INFORMATION
  Report Type: Spontaneous
  Country: US (occurrence: US)
  Receive Date: 20120923
  Receipt Date: 20130523
  Transmission Date: 20140414
  Serious: No
  Sender: FDA-Public Use
  Company Number: US-BIOGENIDEC-2012BI038792

PATIENT
  Age: 57 Year
  Sex: Female

DRUGS (2)
  1. TYSABRI [Suspect]
     Indication: MULTIPLE SCLEROSIS
     Route: 042
     Dates: start: 20120702
  2. AVONEX [Concomitant]
     Indication: MULTIPLE SCLEROSIS
     Route: 030
     Dates: start: 20120521

REACTIONS (6)
  - Chromaturia [Not Recovered/Not Resolved]
  - Injection site scar [Not Recovered/Not Resolved]
  - Poor venous access [Not Recovered/Not Resolved]
  - Cystitis [Recovered/Resolved]
  - Chest pain [Not Recovered/Not Resolved]
  - Constipation [Not Recovered/Not Resolved]
